FAERS Safety Report 7486731-8 (Version None)
Quarter: 2011Q2

REPORT INFORMATION
  Report Type: 
  Country: None (occurrence: None)
  Receive Date: 20110517
  Receipt Date: 20100609
  Transmission Date: 20111010
  Serious: No
  Sender: FDA-Public Use
  Company Number: US-NOVEN-ALL1-2010-03300

PATIENT

DRUGS (2)
  1. DAYTRANA [Suspect]
     Dosage: 15 MG, 1X/DAY:QD
     Route: 062
     Dates: start: 20100607
  2. ZYRTEC [Concomitant]
     Dosage: UNK, 1X/DAY:QD
     Route: 048
     Dates: start: 20040101

REACTIONS (5)
  - NERVOUSNESS [None]
  - INCORRECT DRUG ADMINISTRATION DURATION [None]
  - FATIGUE [None]
  - RESTLESSNESS [None]
  - DECREASED APPETITE [None]
